FAERS Safety Report 4848769-6 (Version None)
Quarter: 2005Q4

REPORT INFORMATION
  Report Type: 
  Country: None (occurrence: None)
  Receive Date: 20051206
  Receipt Date: 20051117
  Transmission Date: 20060501
  Serious: Yes (Other)
  Sender: FDA-Public Use
  Company Number: GB200511001617

PATIENT
  Age: 39 Year
  Sex: Female
  Weight: 77 kg

DRUGS (7)
  1. CYMBALTA [Suspect]
     Indication: DEPRESSION
     Dosage: 60 EACH MORNING, ORAL
     Route: 048
     Dates: start: 20050929, end: 20051102
  2. ZOPICLONE (ZOPICLONE) [Concomitant]
  3. ACETAMINOPHEN W/ CODEINE [Concomitant]
  4. MIGRALEVE (BUCLIZINE HYDROCHLORIDE, CODEINE PHOSPHATE, PARACETAMOL) [Concomitant]
  5. SALBUTAMOL (SALBUTAMOL) [Concomitant]
  6. SALMETEROL (SALMETEROL) [Concomitant]
  7. BECLOMETHASONE DIPROPIONATE (BECLOMETASONE DIPROPIONATE) [Concomitant]

REACTIONS (2)
  - COORDINATION ABNORMAL [None]
  - FALL [None]
